FAERS Safety Report 25112369 (Version 1)
Quarter: 2025Q1

REPORT INFORMATION
  Report Type: Spontaneous
  Country: US (occurrence: US)
  Receive Date: 20250324
  Receipt Date: 20250324
  Transmission Date: 20250408
  Serious: Yes (Hospitalization)
  Sender: MYLAN
  Company Number: US-MYLANLABS-2025M1024966

PATIENT
  Age: 51 Year
  Sex: Male

DRUGS (4)
  1. EVEROLIMUS [Suspect]
     Active Substance: EVEROLIMUS
     Indication: Prophylaxis against transplant rejection
  2. TACROLIMUS [Interacting]
     Active Substance: TACROLIMUS
     Indication: Prophylaxis against transplant rejection
  3. COLCHICINE [Interacting]
     Active Substance: COLCHICINE
     Indication: Pericarditis constrictive
  4. COLCHICINE [Interacting]
     Active Substance: COLCHICINE
     Indication: Serositis

REACTIONS (4)
  - Pericarditis constrictive [Unknown]
  - Serositis [Unknown]
  - Drug interaction [Unknown]
  - Off label use [Unknown]
